FAERS Safety Report 14540418 (Version 2)
Quarter: 2018Q1

REPORT INFORMATION
  Report Type: Spontaneous
  Country: AU (occurrence: AU)
  Receive Date: 20180216
  Receipt Date: 20180228
  Transmission Date: 20180509
  Serious: Yes (Hospitalization, Other)
  Sender: FDA-Public Use
  Company Number: AU-ASTELLAS-2018US008706

PATIENT
  Age: 59 Year
  Sex: Male

DRUGS (3)
  1. MYCOPHENOLATE [Suspect]
     Active Substance: MYCOPHENOLIC ACID
     Indication: RENAL TRANSPLANT
     Dosage: UNK UNK, UNKNOWN FREQ.
     Route: 065
     Dates: start: 20140801, end: 20150801
  2. PREDNISOLONE. [Suspect]
     Active Substance: PREDNISOLONE
     Indication: RENAL TRANSPLANT
     Dosage: UNK UNK, UNKNOWN FREQ.
     Route: 065
  3. TACROLIMUS. [Suspect]
     Active Substance: TACROLIMUS
     Indication: RENAL TRANSPLANT
     Dosage: UNK UNK, UNKNOWN FREQ.
     Route: 065

REACTIONS (10)
  - Transplant dysfunction [Unknown]
  - Urosepsis [Unknown]
  - Clostridium difficile colitis [Unknown]
  - Post thrombotic syndrome [Unknown]
  - Neurodermatitis [Unknown]
  - Cytomegalovirus infection [Unknown]
  - Disseminated cryptococcosis [Recovering/Resolving]
  - Cellulitis [Recovering/Resolving]
  - Peripheral venous disease [Unknown]
  - Renal impairment [Recovered/Resolved]

NARRATIVE: CASE EVENT DATE: 20150101
